FAERS Safety Report 5662029-5 (Version None)
Quarter: 2008Q1

REPORT INFORMATION
  Report Type: 
  Country: None (occurrence: None)
  Receive Date: 20080312
  Receipt Date: 20080229
  Transmission Date: 20080703
  Serious: Yes (Hospitalization)
  Sender: FDA-Public Use
  Company Number: US-AVENTIS-200811377US

PATIENT
  Age: 79 Year
  Sex: Male

DRUGS (6)
  1. TAXOTERE [Suspect]
     Indication: PROSTATE CANCER
     Dosage: DOSE: 70 MG/M2
     Route: 042
     Dates: start: 20071101
  2. TAXOTERE [Suspect]
     Dosage: DOSE: UNK
     Dates: start: 20071201
  3. TAXOTERE [Suspect]
     Dates: start: 20080110
  4. PROPYLTHIOURACIL [Suspect]
     Indication: HYPERTHYROIDISM
  5. AMIODARONE HCL [Concomitant]
     Dosage: DOSE: UNK
  6. UNKNOWN DRUG [Concomitant]

REACTIONS (6)
  - BLOOD CREATININE INCREASED [None]
  - DRUG INTERACTION [None]
  - FEBRILE NEUTROPENIA [None]
  - HYPERTHYROIDISM [None]
  - MUCOSAL INFLAMMATION [None]
  - OEDEMA [None]
